FAERS Safety Report 4589242-2 (Version None)
Quarter: 2005Q1

REPORT INFORMATION
  Report Type: 
  Country: None (occurrence: None)
  Receive Date: 20050216
  Receipt Date: 20050203
  Transmission Date: 20050727
  Serious: Yes (Hospitalization)
  Sender: FDA-Public Use
  Company Number: HQWYE144607FEB05

PATIENT
  Age: 50 Year
  Sex: Male
  Weight: 106.8 kg

DRUGS (17)
  1. RAPAMUNE [Suspect]
     Indication: PROPHYLAXIS AGAINST TRANSPLANT REJECTION
     Dosage: SEE IMAGE
     Route: 048
     Dates: start: 20040227, end: 20040228
  2. RAPAMUNE [Suspect]
     Indication: PROPHYLAXIS AGAINST TRANSPLANT REJECTION
     Dosage: SEE IMAGE
     Route: 048
     Dates: start: 20040229, end: 20040608
  3. RAPAMUNE [Suspect]
     Indication: PROPHYLAXIS AGAINST TRANSPLANT REJECTION
     Dosage: SEE IMAGE
     Route: 048
     Dates: start: 20040608, end: 20041017
  4. RAPAMUNE [Suspect]
     Indication: PROPHYLAXIS AGAINST TRANSPLANT REJECTION
     Dosage: SEE IMAGE
     Route: 048
     Dates: start: 20041018
  5. PREDNISONE [Concomitant]
  6. NEORAL [Concomitant]
  7. AMLODIPINE [Concomitant]
  8. BACTRIM [Concomitant]
  9. COLACE (DOCUSATE SODIUM) [Concomitant]
  10. ALLOPURINOL [Concomitant]
  11. LIPITOR [Concomitant]
  12. SODIUM BICARBONATE IN PLASTIC CONTAINER [Concomitant]
  13. SYNTHROID [Concomitant]
  14. ASPIRIN [Concomitant]
  15. NEURONTIN [Concomitant]
  16. FERROUS SULFATE TAB [Concomitant]
  17. COMBIVENT [Concomitant]

REACTIONS (11)
  - CORONARY ARTERY DISEASE [None]
  - DERMATITIS ATOPIC [None]
  - DERMATITIS CONTACT [None]
  - DERMATITIS PSORIASIFORM [None]
  - DRUG ERUPTION [None]
  - ECZEMA [None]
  - ENTEROCOCCAL INFECTION [None]
  - EOSINOPHILIA [None]
  - HAEMOGLOBIN DECREASED [None]
  - MYOCARDIAL INFARCTION [None]
  - URINARY TRACT INFECTION [None]
